FAERS Safety Report 7927566-9 (Version None)
Quarter: 2011Q4

REPORT INFORMATION
  Report Type: 
  Country: None (occurrence: None)
  Receive Date: 20111118
  Receipt Date: 20111107
  Transmission Date: 20120403
  Serious: Yes (Hospitalization)
  Sender: FDA-Public Use
  Company Number: US-ROCHE-1012421

PATIENT
  Sex: Female

DRUGS (4)
  1. HERCEPTIN [Suspect]
     Indication: BREAST CANCER
     Dosage: 4 MG/KG LOADING DOSE IV ON WEEK 1 FOLLOWED BY 2 MG/KG WEEKLY WEEKS 2-10
     Route: 042
     Dates: start: 20000223
  2. DOXORUBICIN HCL [Suspect]
     Indication: BREAST CANCER
     Dosage: IVP ON DAY 1 BEGINNING CYCLE 5, EVERY 3 WEEKS X 4
     Dates: start: 20000223
  3. CYCLOPHOSPHAMIDE [Suspect]
     Indication: BREAST CANCER
     Dosage: ON DAY 1 BEGINNING CYCLE 5, EVERY 3 WEEKS X 4
     Route: 042
     Dates: start: 20000223
  4. PACLITAXEL [Suspect]
     Indication: BREAST CANCER
     Dosage: DAY 1, EVERY 21 DAYS X4
     Route: 042
     Dates: start: 20000223

REACTIONS (2)
  - LEFT VENTRICULAR DYSFUNCTION [None]
  - MYOCARDIAL INFARCTION [None]
